FAERS Safety Report 8980070 (Version 1)
Quarter: 2012Q4

REPORT INFORMATION
  Report Type: 
  Country: US (occurrence: US)
  Receive Date: 20121221
  Receipt Date: 20121221
  Transmission Date: 20130627
  Serious: Yes (Other)
  Sender: FDA-Public Use
  Company Number: CHPA2012US025320

PATIENT
  Age: 23 Year
  Sex: Female

DRUGS (1)
  1. TRANSDERM SCOP [Suspect]
     Indication: MOTION SICKNESS
     Dosage: Unk, Unk
     Route: 062
     Dates: start: 20121009

REACTIONS (3)
  - Blindness [Unknown]
  - Eye swelling [Unknown]
  - Mydriasis [Unknown]
